FAERS Safety Report 4685593-1 (Version None)
Quarter: 2005Q2

REPORT INFORMATION
  Report Type: 
  Country: None (occurrence: None)
  Receive Date: 20050608
  Receipt Date: 20050526
  Transmission Date: 20051028
  Serious: Yes (Death, Life-Threatening, Hospitalization)
  Sender: FDA-Public Use
  Company Number: 2005-01-1879

PATIENT
  Age: 63 Year
  Sex: Female
  Weight: 45 kg

DRUGS (12)
  1. CELESTONE [Suspect]
     Indication: BRAIN OEDEMA
     Dosage: SEE IMAGE
     Route: 048
     Dates: end: 20041104
  2. CELESTONE [Suspect]
     Indication: BRAIN OEDEMA
     Dosage: SEE IMAGE
     Route: 048
     Dates: start: 20041104
  3. TEMOZOLOMIDE CAPSULES [Suspect]
     Indication: ANAPLASTIC ASTROCYTOMA
     Dosage: SEE IMAGE
     Route: 048
     Dates: start: 20040929, end: 20041003
  4. TEMOZOLOMIDE CAPSULES [Suspect]
     Indication: ANAPLASTIC ASTROCYTOMA
     Dosage: SEE IMAGE
     Route: 048
     Dates: start: 20040929, end: 20050102
  5. TEMOZOLOMIDE CAPSULES [Suspect]
     Indication: ANAPLASTIC ASTROCYTOMA
     Dosage: SEE IMAGE
     Route: 048
     Dates: start: 20041229, end: 20050102
  6. AMLODIPINE BESILATE TABELTS [Concomitant]
  7. GASTER TABLETS [Concomitant]
  8. SELBEX CAPSULES [Concomitant]
  9. PURSENNID [Concomitant]
  10. BAKTAR TABLETS [Concomitant]
  11. NAVOBAN [Concomitant]
  12. LOXOPROFEN SODIUM [Concomitant]

REACTIONS (21)
  - ALANINE AMINOTRANSFERASE INCREASED [None]
  - ASCITES [None]
  - ASPARTATE AMINOTRANSFERASE INCREASED [None]
  - BLOOD GLUCOSE INCREASED [None]
  - C-REACTIVE PROTEIN INCREASED [None]
  - CANDIDIASIS [None]
  - DISEASE PROGRESSION [None]
  - DISSEMINATED INTRAVASCULAR COAGULATION [None]
  - DRUG INEFFECTIVE [None]
  - ENDOTOXIC SHOCK [None]
  - HERPES ZOSTER [None]
  - MULTI-ORGAN FAILURE [None]
  - OEDEMA PERIPHERAL [None]
  - PANCYTOPENIA [None]
  - PERICARDIAL EFFUSION [None]
  - PLEURAL EFFUSION [None]
  - RENAL FAILURE ACUTE [None]
  - RESPIRATORY FAILURE [None]
  - SEPSIS [None]
  - SEPTIC SHOCK [None]
  - SPUTUM CULTURE POSITIVE [None]
